FAERS Safety Report 9606917 (Version 2)
Quarter: 2013Q4

REPORT INFORMATION
  Report Type: Spontaneous
  Country: US (occurrence: US)
  Receive Date: 20131008
  Receipt Date: 20131008
  Transmission Date: 20140711
  Serious: No
  Sender: FDA-Public Use
  Company Number: US-AMGEN-USASP2013059226

PATIENT
  Age: 78 Year
  Sex: Female
  Weight: 71.2 kg

DRUGS (22)
  1. PROLIA [Suspect]
     Indication: OSTEOPOROSIS
     Dosage: 60 MG, Q6MO
     Route: 058
     Dates: start: 20130301
  2. BUPROPION [Concomitant]
  3. RITALIN [Concomitant]
  4. B VITAMIN COMP                     /00003501/ [Concomitant]
  5. CALCIUM                            /00060701/ [Concomitant]
     Dosage: 500 MG, QD
     Route: 048
     Dates: start: 20130307
  6. DOCUSATE SODIUM [Concomitant]
     Dosage: 100 MG, BID
     Route: 048
     Dates: start: 20130307
  7. WELLBUTRIN [Concomitant]
     Dosage: 300 MG, QD
     Route: 048
     Dates: start: 20130307
  8. NAMENDA [Concomitant]
     Dosage: 10 MG, QHS
     Route: 048
     Dates: start: 20130307
  9. GABAPENTIN [Concomitant]
     Dosage: 100 MG, QHS
     Route: 048
     Dates: start: 20130307
  10. LAMOTRIGINE [Concomitant]
     Dosage: 200 MG, QHS
     Route: 048
     Dates: start: 20130307
  11. CALCIUM ACETATE [Concomitant]
     Dosage: 667 MG, BID
     Route: 048
     Dates: start: 20130307
  12. OMEPRAZOLE [Concomitant]
     Dosage: 20 MG, QD
     Route: 048
     Dates: start: 20130307
  13. DIPHENHYDRAMINE [Concomitant]
     Dosage: 25 MG, AS NECESSARY
     Route: 048
     Dates: start: 20130307
  14. VENLAFAXINE [Concomitant]
     Dosage: 37.5 MG IN MORNING AND 75 MG NIGHTLY
     Route: 048
     Dates: start: 20130307
  15. OXYBUTYNIN CHLORIDE [Concomitant]
     Dosage: 5 MG, QD
     Route: 048
     Dates: start: 20130307
  16. FABB [Concomitant]
     Dosage: 2.2 MG-25 MG-1MG, BID
     Route: 048
     Dates: start: 20130307
  17. VITAMIN D3 [Concomitant]
     Dosage: 1000 UNIT, QD
     Route: 048
     Dates: start: 20130307
  18. CETIRIZINE [Concomitant]
     Dosage: 10 MG, QD
     Route: 048
     Dates: start: 20130307
  19. NEPHRO VITE RX [Concomitant]
     Dosage: 0.8 MG, QD
     Route: 048
     Dates: start: 20130307
  20. MAPAP EXTRA STRENGTH [Concomitant]
     Dosage: 500 MG, TID
     Route: 048
     Dates: start: 20130307
  21. DELSYM [Concomitant]
     Dosage: 30 MG/ML, TWICE A DAY AS NEEDED
     Dates: start: 20130307
  22. PHENERGAN                          /00033001/ [Concomitant]
     Dosage: 25 MG, AS NECESSARY
     Route: 054
     Dates: start: 20130307

REACTIONS (1)
  - Blood phosphorus increased [Recovering/Resolving]
